FAERS Safety Report 20667358 (Version 1)
Quarter: 2022Q2

REPORT INFORMATION
  Report Type: Spontaneous
  Country: EG (occurrence: EG)
  Receive Date: 20220404
  Receipt Date: 20220404
  Transmission Date: 20220721
  Serious: Yes (Other)
  Sender: FDA-Public Use
  Company Number: EG-NOVOPROD-903666

PATIENT
  Age: 593 Month
  Sex: Female
  Weight: 96 kg

DRUGS (5)
  1. GLUCOPHAGE [Concomitant]
     Active Substance: METFORMIN HYDROCHLORIDE
     Indication: Diabetes mellitus
     Dosage: 1000 MG (1 OR 2 TABLETS)
     Route: 048
  2. NORTERONE [Concomitant]
     Indication: Neuropathy peripheral
     Dosage: 2 TABLETS
     Route: 048
  3. MIXTARD HUMAN 70/30 [Suspect]
     Active Substance: INSULIN HUMAN
     Indication: Diabetes mellitus
     Dosage: UNK
     Route: 058
     Dates: start: 1996, end: 201806
  4. RUTA C [Concomitant]
     Dosage: 2 TABLETS FROM 2006 AND STOPPED FROM 2 MONTHS
     Route: 048
     Dates: start: 2006, end: 2022
  5. LANTUS [Concomitant]
     Active Substance: INSULIN GLARGINE
     Indication: Diabetes mellitus
     Dosage: 20-30 U
     Route: 058

REACTIONS (4)
  - Retinal operation [Not Recovered/Not Resolved]
  - Cataract [Not Recovered/Not Resolved]
  - Optic atrophy [Not Recovered/Not Resolved]
  - Blood glucose fluctuation [Unknown]

NARRATIVE: CASE EVENT DATE: 20180101
